FAERS Safety Report 16554763 (Version 2)
Quarter: 2019Q3

REPORT INFORMATION
  Report Type: Spontaneous
  Country: US (occurrence: US)
  Receive Date: 20190710
  Receipt Date: 20190730
  Transmission Date: 20191004
  Serious: No
  Sender: FDA-Public Use
  Company Number: US-PFIZER INC-2019285398

PATIENT
  Age: 75 Year
  Sex: Female
  Weight: 97.51 kg

DRUGS (20)
  1. HYDROCODONE/ACETAMINOPHEN [Concomitant]
     Active Substance: ACETAMINOPHEN\HYDROCODONE
     Dosage: UNK, AS NEEDED (TAKE 1-2 TABLET EVERY 6 HOURS AS NEEDED )
  2. SLOW MAG [MAGNESIUM CHLORIDE] [Concomitant]
     Active Substance: MAGNESIUM CHLORIDE
     Dosage: UNK (1/2 TABLET PER WEEK)
  3. GLIMEPIRIDE. [Concomitant]
     Active Substance: GLIMEPIRIDE
     Dosage: 2 MG, DAILY (TAKE 1 TABLET DAILY )
  4. AMITRIPTYLINE HCL [Concomitant]
     Active Substance: AMITRIPTYLINE
     Dosage: 50 MG, 1X/DAY
  5. MECLIZINE [Concomitant]
     Active Substance: MECLIZINE HYDROCHLORIDE
     Dosage: 25 MG, AS NEEDED
  6. ARICEPT [Concomitant]
     Active Substance: DONEPEZIL HYDROCHLORIDE
     Dosage: 5 MG, UNK
     Route: 048
  7. FUROSEMIDE. [Concomitant]
     Active Substance: FUROSEMIDE
     Dosage: 50 UG, 1X/DAY (TAKE 2 TABLET ONCE DAILY )
  8. LETROZOLE. [Concomitant]
     Active Substance: LETROZOLE
     Dosage: 2.5 MG, DAILY (TAKE 1 TABLET DAILY )
     Route: 048
  9. GABAPENTIN. [Concomitant]
     Active Substance: GABAPENTIN
     Dosage: 600 MG, AS NEEDED (2 TABLETS 3 TIMES A DAY AS NEEDED )
  10. VITAMIN B12 [Concomitant]
     Active Substance: CYANOCOBALAMIN
     Dosage: UNK
  11. FENTANYL TRANSDERMAL SYSTEM [Concomitant]
     Active Substance: FENTANYL
     Dosage: 25 UG, UNK (APPLY 1 PATCH EVERY 3 DAYS )
  12. METOLAZONE. [Concomitant]
     Active Substance: METOLAZONE
     Dosage: 5 MG, DAILY (TAKE 1 TABLET DAILY)
  13. ROPINIROLE. [Concomitant]
     Active Substance: ROPINIROLE
     Dosage: 1 MG, 4X/DAY
  14. SIMVASTATIN. [Concomitant]
     Active Substance: SIMVASTATIN
     Dosage: 40 MG, DAILY (TAKE 1 TABLET DAILY )
  15. DRONABINOL. [Concomitant]
     Active Substance: DRONABINOL
     Dosage: 5 MG, DAILY (TAKE 2 TABLETS DAILY )
  16. IRON [Concomitant]
     Active Substance: IRON
     Dosage: UNK (1 TABLET EVERY OTHER DAY)
  17. IBRANCE [Suspect]
     Active Substance: PALBOCICLIB
     Dosage: 125 MG, CYCLIC (DAILY FOR 21 DAYS/TAKE 21 DAYS OFF 7 DAYS)
  18. POTASSIUM CHLORIDE. [Concomitant]
     Active Substance: POTASSIUM CHLORIDE
     Dosage: 30 MG, 3X/DAY (TAKE 3 CAPSULE 3 TIMES DAILY )
  19. PROPANOLOL [PROPRANOLOL] [Concomitant]
     Active Substance: PROPRANOLOL HYDROCHLORIDE
     Dosage: 80 MG, DAILY (TAKE 1 CAPSULE DAILY)
  20. WARFARIN SODIUM. [Concomitant]
     Active Substance: WARFARIN SODIUM
     Dosage: 5 MG, UNK
     Route: 048

REACTIONS (2)
  - Nausea [Unknown]
  - Diarrhoea [Unknown]

NARRATIVE: CASE EVENT DATE: 201906
